FAERS Safety Report 9907858 (Version 2)
Quarter: 2014Q2

REPORT INFORMATION
  Report Type: Spontaneous
  Country: US (occurrence: US)
  Receive Date: 20140219
  Receipt Date: 20140616
  Transmission Date: 20141212
  Serious: No
  Sender: FDA-Public Use
  Company Number: US-BIOGENIDEC-2014BI014234

PATIENT
  Age: 41 Year
  Sex: Female

DRUGS (7)
  1. TECFIDERA [Suspect]
     Indication: MULTIPLE SCLEROSIS
     Route: 048
  2. TECFIDERA [Suspect]
     Indication: MULTIPLE SCLEROSIS
  3. AVONEX [Concomitant]
     Route: 030
  4. LITHIUM CARBONATE [Concomitant]
  5. SERTRALINE HCL [Concomitant]
  6. PROPANOLOL HCL [Concomitant]
  7. VITAMIN D3 [Concomitant]

REACTIONS (9)
  - Tremor [Unknown]
  - Visual impairment [Not Recovered/Not Resolved]
  - Muscular weakness [Unknown]
  - Migraine [Not Recovered/Not Resolved]
  - Vision blurred [Not Recovered/Not Resolved]
  - Pain in extremity [Not Recovered/Not Resolved]
  - Fatigue [Not Recovered/Not Resolved]
  - Bipolar disorder [Not Recovered/Not Resolved]
  - Depression [Not Recovered/Not Resolved]
